FAERS Safety Report 4559824-2 (Version None)
Quarter: 2005Q1

REPORT INFORMATION
  Report Type: 
  Country: None (occurrence: None)
  Receive Date: 20050107
  Receipt Date: 20040922
  Transmission Date: 20050727
  Serious: Yes (Hospitalization)
  Sender: FDA-Public Use
  Company Number: 234789K04USA

PATIENT
  Age: 45 Year
  Sex: Female

DRUGS (2)
  1. REBIF [Suspect]
     Indication: MULTIPLE SCLEROSIS
     Dosage: 22 MCG, NOT REPORTED, NOT
     Dates: start: 20040624, end: 20040701
  2. NEURONTIN [Concomitant]

REACTIONS (5)
  - CONDITION AGGRAVATED [None]
  - INJECTION SITE PAIN [None]
  - INJECTION SITE REACTION [None]
  - LIVER FUNCTION TEST ABNORMAL [None]
  - MULTIPLE SCLEROSIS [None]
